FAERS Safety Report 15984839 (Version 1)
Quarter: 2019Q1

REPORT INFORMATION
  Report Type: Report from Study
  Country: US (occurrence: US)
  Receive Date: 20190220
  Receipt Date: 20190220
  Transmission Date: 20190418
  Serious: Yes (Hospitalization)
  Sender: FDA-Public Use
  Company Number: US-BAYER-2019-035126

PATIENT
  Age: 70 Year
  Sex: Female
  Weight: 78.46 kg

DRUGS (3)
  1. ADEMPAS [Suspect]
     Active Substance: RIOCIGUAT
     Indication: PULMONARY ARTERIAL HYPERTENSION
     Dosage: 2.5 MG, TID
     Route: 048
  2. ADEMPAS [Suspect]
     Active Substance: RIOCIGUAT
     Indication: PULMONARY ARTERIAL HYPERTENSION
     Dosage: UNK
     Dates: start: 20180827
  3. XARELTO [Suspect]
     Active Substance: RIVAROXABAN
     Dosage: UNK

REACTIONS (2)
  - Epistaxis [Unknown]
  - Investigation [None]

NARRATIVE: CASE EVENT DATE: 2018
